FAERS Safety Report 18134990 (Version 3)
Quarter: 2021Q1

REPORT INFORMATION
  Report Type: Report from Study
  Country: CA (occurrence: CA)
  Receive Date: 20200811
  Receipt Date: 20210304
  Transmission Date: 20210419
  Serious: Yes (Death, Life-Threatening, Hospitalization, Other)
  Sender: FDA-Public Use
  Company Number: CA-PFIZER INC-2020300968

PATIENT
  Age: 40 Year
  Sex: Female
  Weight: 65 kg

DRUGS (19)
  1. VORICONAZOLE. [Interacting]
     Active Substance: VORICONAZOLE
     Indication: BRONCHOPULMONARY ASPERGILLOSIS
     Dosage: 390 MG, 2X/DAY
     Route: 042
  2. ASP2215 [Interacting]
     Active Substance: GILTERITINIB
     Indication: ACUTE MYELOID LEUKAEMIA
     Dosage: 80 MG, 1X/DAY
     Route: 048
  3. VALTREX [Concomitant]
     Active Substance: VALACYCLOVIR HYDROCHLORIDE
     Dosage: 500 MG, 1X/DAY
     Route: 048
  4. AMITRIPTYLINE [Interacting]
     Active Substance: AMITRIPTYLINE
     Indication: MIGRAINE
     Dosage: 25 MG, 1X/DAY
     Route: 048
  5. DECADRON [Interacting]
     Active Substance: DEXAMETHASONE
     Dosage: 2.5 MG, 1X/DAY
     Route: 048
  6. VALTREX [Concomitant]
     Active Substance: VALACYCLOVIR HYDROCHLORIDE
     Indication: INFECTION PROPHYLAXIS
     Dosage: 500 MG, 1X/DAY
     Route: 048
  7. ASP2215 [Interacting]
     Active Substance: GILTERITINIB
     Dosage: 120 MG, 1X/DAY
     Route: 048
  8. AMITRIPTYLINE [Interacting]
     Active Substance: AMITRIPTYLINE
     Indication: MIGRAINE
     Route: 048
  9. ASP2215 [Interacting]
     Active Substance: GILTERITINIB
     Dosage: 80 MG, 1X/DAY
     Route: 048
  10. VORICONAZOLE. [Suspect]
     Active Substance: VORICONAZOLE
     Indication: PNEUMONIA
     Dosage: UNK
  11. AMITRIPTYLINE [Interacting]
     Active Substance: AMITRIPTYLINE
     Indication: ANXIETY
  12. AMITRIPTYLINE [Interacting]
     Active Substance: AMITRIPTYLINE
     Indication: ANXIETY
  13. DECADRON [Interacting]
     Active Substance: DEXAMETHASONE
     Dosage: 10 MG, 1X/DAY
     Route: 048
  14. ESCITALOPRAM [Interacting]
     Active Substance: ESCITALOPRAM OXALATE
     Indication: ANXIETY
     Route: 048
  15. HYDROXYUREA. [Concomitant]
     Active Substance: HYDROXYUREA
     Indication: ACUTE MYELOID LEUKAEMIA
     Dosage: 1000 MG, 2X/DAY
     Route: 048
  16. PENTAMIDINE [Concomitant]
     Active Substance: PENTAMIDINE
     Indication: INFECTION PROPHYLAXIS
     Dosage: UNK, MONTHLY
     Route: 065
  17. ASP2215 [Interacting]
     Active Substance: GILTERITINIB
     Dosage: 120 MG, 1X/DAY
     Route: 048
  18. DECADRON [Interacting]
     Active Substance: DEXAMETHASONE
     Indication: DIFFERENTIATION SYNDROME
     Dosage: 7.5 MG, 1X/DAY
     Route: 048
  19. ESCITALOPRAM [Interacting]
     Active Substance: ESCITALOPRAM OXALATE
     Indication: ANXIETY
     Dosage: 20 MG, 1X/DAY
     Route: 048

REACTIONS (8)
  - Somnolence [Fatal]
  - Syncope [Fatal]
  - Pneumonia [Fatal]
  - Febrile neutropenia [Fatal]
  - Electrocardiogram QT prolonged [Fatal]
  - Sinus bradycardia [Fatal]
  - Drug interaction [Fatal]
  - Acute febrile neutrophilic dermatosis [Fatal]
